FAERS Safety Report 17044490 (Version 1)
Quarter: 2019Q4

REPORT INFORMATION
  Report Type: Spontaneous
  Country: US (occurrence: US)
  Receive Date: 20191117
  Receipt Date: 20191117
  Transmission Date: 20200122
  Serious: Yes (Disabling)
  Sender: FDA-Public Use
  Company Number: None

PATIENT
  Age: 21 Year
  Sex: Female
  Weight: 49.5 kg

DRUGS (3)
  1. LEVOFLOXACIN 500MG [Suspect]
     Active Substance: LEVOFLOXACIN
     Indication: BACTERIAL INFECTION
     Dosage: ?          QUANTITY:1 TABLET(S);?
     Route: 048
     Dates: start: 20191003, end: 20191008
  2. VITAMINS [Concomitant]
     Active Substance: VITAMINS
  3. LEVOFLOXACIN 500MG [Suspect]
     Active Substance: LEVOFLOXACIN
     Indication: SINUSITIS
     Dosage: ?          QUANTITY:1 TABLET(S);?
     Route: 048
     Dates: start: 20191003, end: 20191008

REACTIONS (7)
  - Paraesthesia [None]
  - Cognitive disorder [None]
  - Muscle twitching [None]
  - Myalgia [None]
  - Blood glucose decreased [None]
  - Tendon pain [None]
  - Pain [None]

NARRATIVE: CASE EVENT DATE: 20191008
